FAERS Safety Report 5896103-5 (Version None)
Quarter: 2008Q3

REPORT INFORMATION
  Report Type: 
  Country: None (occurrence: None)
  Receive Date: 20080924
  Receipt Date: 20080912
  Transmission Date: 20090109
  Serious: Yes (Other)
  Sender: FDA-Public Use
  Company Number: US-PFIZER INC-2008077628

PATIENT
  Age: 25 Year
  Sex: Female

DRUGS (1)
  1. GEODON [Suspect]
     Dosage: DAILY DOSE:50MG

REACTIONS (2)
  - INCONTINENCE [None]
  - SEDATION [None]
